FAERS Safety Report 7817629-0 (Version None)
Quarter: 2011Q4

REPORT INFORMATION
  Report Type: 
  Country: None (occurrence: None)
  Receive Date: 20111017
  Receipt Date: 20111007
  Transmission Date: 20120403
  Serious: Yes (Other)
  Sender: FDA-Public Use
  Company Number: AU-JNJFOC-20111004825

PATIENT
  Age: 7 Decade
  Sex: Female

DRUGS (3)
  1. SIMVASTATIN [Concomitant]
     Route: 065
  2. TOPAMAX [Suspect]
     Indication: MIGRAINE PROPHYLAXIS
     Route: 048
     Dates: start: 20111005
  3. NOTEN [Concomitant]
     Route: 065

REACTIONS (1)
  - EYE HAEMORRHAGE [None]
